FAERS Safety Report 5839445-1 (Version None)
Quarter: 2008Q3

REPORT INFORMATION
  Report Type: 
  Country: None (occurrence: None)
  Receive Date: 20080807
  Receipt Date: 20080725
  Transmission Date: 20090109
  Serious: Yes (Death)
  Sender: FDA-Public Use
  Company Number: 2008001767

PATIENT
  Age: 75 Year
  Sex: Male
  Weight: 64.5 kg

DRUGS (6)
  1. ERLOTINIB (ERLOTINIB) (TABLET) (ERLOTINIB) [Suspect]
     Indication: LUNG ADENOCARCINOMA
     Dosage: 150 MG, QD, ORAL
     Route: 048
     Dates: start: 20080116, end: 20080225
  2. ZONISAMIDE [Suspect]
     Dosage: 200 MG, ORAL
     Route: 048
     Dates: start: 20080226, end: 20080327
  3. DIPYRIDAMOLE [Concomitant]
  4. RAMITALATE [Concomitant]
  5. FAMOTIDINE [Concomitant]
  6. BETAMETHASONE [Concomitant]

REACTIONS (8)
  - CONSTIPATION [None]
  - ERYTHEMA MULTIFORME [None]
  - GASTROINTESTINAL DISORDER [None]
  - MALIGNANT NEOPLASM PROGRESSION [None]
  - NO THERAPEUTIC RESPONSE [None]
  - PAIN [None]
  - STEVENS-JOHNSON SYNDROME [None]
  - VIRAL INFECTION [None]
